FAERS Safety Report 16101013 (Version 2)
Quarter: 2019Q2

REPORT INFORMATION
  Report Type: Report from Study
  Country: US (occurrence: US)
  Receive Date: 20190321
  Receipt Date: 20190402
  Transmission Date: 20190711
  Serious: Yes (Other)
  Sender: FDA-Public Use
  Company Number: US-ALEXION PHARMACEUTICALS INC.-A201904220

PATIENT
  Sex: Male

DRUGS (2)
  1. SOLIRIS [Suspect]
     Active Substance: ECULIZUMAB
     Indication: PRODUCT USED FOR UNKNOWN INDICATION
     Dosage: UNK
     Route: 065
  2. CYCLOPHOSPHAMIDE. [Concomitant]
     Active Substance: CYCLOPHOSPHAMIDE
     Indication: PROPHYLAXIS
     Dosage: UNK
     Route: 065

REACTIONS (18)
  - Blood calcium decreased [Unknown]
  - Blood bicarbonate decreased [Unknown]
  - Fatigue [Unknown]
  - Blood urea increased [Unknown]
  - Oedema peripheral [Unknown]
  - Haemoglobin decreased [Unknown]
  - Red blood cell count decreased [Unknown]
  - Seborrhoeic keratosis [Unknown]
  - Haematocrit decreased [Unknown]
  - Blood phosphorus increased [Unknown]
  - Blood lactate dehydrogenase increased [Unknown]
  - Feeling hot [Unknown]
  - Blood albumin decreased [Unknown]
  - Protein total decreased [Unknown]
  - Haptoglobin decreased [Unknown]
  - Reticulocyte count decreased [Unknown]
  - Blood creatinine increased [Unknown]
  - Red cell distribution width increased [Unknown]
